FAERS Safety Report 16335239 (Version 1)
Quarter: 2019Q2

REPORT INFORMATION
  Report Type: Spontaneous
  Country: US (occurrence: US)
  Receive Date: 20190521
  Receipt Date: 20190521
  Transmission Date: 20190711
  Serious: No
  Sender: FDA-Public Use
  Company Number: US-TEVA-2019-US-1048624

PATIENT
  Sex: Female

DRUGS (1)
  1. MUPIROCIN OINTMENT [Suspect]
     Active Substance: MUPIROCIN
     Indication: PROPHYLAXIS
     Route: 061
     Dates: start: 20190215, end: 20190219

REACTIONS (3)
  - Feeling abnormal [Unknown]
  - Palpitations [Unknown]
  - Anxiety [Unknown]
